FAERS Safety Report 25129736 (Version 1)
Quarter: 2025Q1

REPORT INFORMATION
  Report Type: Spontaneous
  Country: US (occurrence: US)
  Receive Date: 20250327
  Receipt Date: 20250327
  Transmission Date: 20250409
  Serious: Yes (Other)
  Sender: PFIZER
  Company Number: US-PFIZER INC-202400202109

PATIENT
  Age: 67 Year
  Sex: Female

DRUGS (4)
  1. XELJANZ XR [Suspect]
     Active Substance: TOFACITINIB CITRATE
  2. FORTEO [Concomitant]
     Active Substance: TERIPARATIDE
  3. ROSUVASTATIN CALCIUM [Concomitant]
     Active Substance: ROSUVASTATIN CALCIUM
  4. HAIR, SKIN + NAILS [BIOTIN] [Concomitant]

REACTIONS (3)
  - Shoulder fracture [Unknown]
  - Upper limb fracture [Unknown]
  - Fall [Unknown]
